FAERS Safety Report 14978303 (Version 1)
Quarter: 2018Q2

REPORT INFORMATION
  Report Type: Spontaneous
  Country: US (occurrence: US)
  Receive Date: 20180516
  Receipt Date: 20180516
  Transmission Date: 20180711
  Serious: Yes (Life-Threatening, Disabling, Other)
  Sender: FDA-Public Use
  Company Number: None

PATIENT
  Age: 51 Year
  Sex: Male
  Weight: 110.25 kg

DRUGS (4)
  1. XANAX [Concomitant]
     Active Substance: ALPRAZOLAM
     Route: 048
  2. LEVAQUIN [Suspect]
     Active Substance: LEVOFLOXACIN
     Indication: EPIDIDYMITIS
     Dosage: ?          QUANTITY:1 DF DOSAGE FORM;?
     Route: 048
     Dates: start: 20171130, end: 20171209
  3. CIPROFLOXIN [Concomitant]
     Active Substance: CIPROFLOXACIN
     Indication: PROSTATITIS
     Dosage: ?          QUANTITY:2 DF DOSAGE FORM;?
  4. MULTIVITAMIN [Concomitant]
     Active Substance: VITAMINS

REACTIONS (9)
  - Guttate psoriasis [None]
  - Toxicity to various agents [None]
  - Pain [None]
  - Asthenia [None]
  - Gait disturbance [None]
  - Tendon disorder [None]
  - Mitochondrial cytopathy [None]
  - Muscle atrophy [None]
  - Periarthritis [None]

NARRATIVE: CASE EVENT DATE: 20171201
